FAERS Safety Report 23267636 (Version 1)
Quarter: 2023Q4

REPORT INFORMATION
  Report Type: Spontaneous
  Country: US (occurrence: None)
  Receive Date: 20231205
  Receipt Date: 20231205
  Transmission Date: 20240109
  Serious: Yes (Other)
  Sender: FDA-Public Use
  Company Number: None

PATIENT
  Age: 27 Year
  Sex: Female
  Weight: 97 kg

DRUGS (3)
  1. ARIPIPRAZOLE [Suspect]
     Active Substance: ARIPIPRAZOLE
     Indication: Psychotic disorder
     Dosage: FREQUENCY : DAILY;?
     Route: 048
     Dates: start: 20231108, end: 20231204
  2. FLUOXETINE [Concomitant]
     Dates: start: 20231108
  3. TRAZODONE [Concomitant]
     Dates: start: 20231108

REACTIONS (5)
  - Tongue movement disturbance [None]
  - Lip disorder [None]
  - Dyskinesia [None]
  - Grimacing [None]
  - Speech disorder [None]

NARRATIVE: CASE EVENT DATE: 20231204
